FAERS Safety Report 16497509 (Version 1)
Quarter: 2019Q2

REPORT INFORMATION
  Report Type: Report from Study
  Country: CA (occurrence: CA)
  Receive Date: 20190628
  Receipt Date: 20190628
  Transmission Date: 20190711
  Serious: Yes (Death)
  Sender: FDA-Public Use
  Company Number: CA-TAIHO ONCOLOGY  INC-EU-2018-01489

PATIENT
  Age: 54 Year
  Sex: Male
  Weight: 76.6 kg

DRUGS (4)
  1. LONSURF [Suspect]
     Active Substance: TIPIRACIL HYDROCHLORIDE\TRIFLURIDINE
     Dosage: CYCLE 5
     Route: 048
     Dates: start: 20181105, end: 20181116
  2. LONSURF [Suspect]
     Active Substance: TIPIRACIL HYDROCHLORIDE\TRIFLURIDINE
     Dosage: CYCLE 3
     Route: 048
     Dates: start: 20180827, end: 20180907
  3. LONSURF [Suspect]
     Active Substance: TIPIRACIL HYDROCHLORIDE\TRIFLURIDINE
     Indication: COLORECTAL CANCER METASTATIC
     Dosage: CYCLE 1 STARTED ON 18/JUN/2018 AND ENDED ON 29/JUN/2018.?CYCLE 2 STARTED ON 16/JUL/2018 AND ENDED ON
     Route: 048
     Dates: start: 20180618, end: 20180727
  4. LONSURF [Suspect]
     Active Substance: TIPIRACIL HYDROCHLORIDE\TRIFLURIDINE
     Dosage: CYCLE 4
     Route: 048
     Dates: start: 20181001, end: 20181012

REACTIONS (6)
  - Pain [Unknown]
  - Death [Fatal]
  - Back pain [Unknown]
  - Somnolence [Unknown]
  - Muscle spasms [Unknown]
  - Neutrophil count decreased [Unknown]

NARRATIVE: CASE EVENT DATE: 2018
